FAERS Safety Report 8198779-9 (Version None)
Quarter: 2012Q1

REPORT INFORMATION
  Report Type: 
  Country: None (occurrence: None)
  Receive Date: 20120309
  Receipt Date: 20120209
  Transmission Date: 20120608
  Serious: No
  Sender: FDA-Public Use
  Company Number: US-AMGEN-USASP2012009144

PATIENT
  Sex: Female

DRUGS (2)
  1. PROLIA [Suspect]
  2. PROLIA [Suspect]
     Indication: OSTEOPOROSIS POSTMENOPAUSAL
     Dosage: 60 MG, Q6MO

REACTIONS (3)
  - PAIN [None]
  - POLLAKIURIA [None]
  - MUSCULOSKELETAL PAIN [None]
